FAERS Safety Report 11382415 (Version 1)
Quarter: 2015Q3

REPORT INFORMATION
  Report Type: Spontaneous
  Country: US (occurrence: US)
  Receive Date: 20150811
  Receipt Date: 20150811
  Transmission Date: 20151125
  Serious: No
  Sender: FDA-Public Use
  Company Number: US-ELI_LILLY_AND_COMPANY-US201007003434

PATIENT
  Age: 60 Year
  Sex: Male
  Weight: 88.44 kg

DRUGS (4)
  1. CIALIS [Suspect]
     Active Substance: TADALAFIL
     Indication: ERECTILE DYSFUNCTION
     Dosage: UNK, DAILY (1/D)
  2. ALTACE [Concomitant]
     Active Substance: RAMIPRIL
  3. ASPIRIN. [Concomitant]
     Active Substance: ASPIRIN
  4. CIALIS [Suspect]
     Active Substance: TADALAFIL
     Dosage: 20 MG, AS NEEDED

REACTIONS (5)
  - Headache [Unknown]
  - Dyspepsia [Unknown]
  - Discomfort [Unknown]
  - Intentional product misuse [Unknown]
  - Flushing [Unknown]
